FAERS Safety Report 4617147-7 (Version None)
Quarter: 2005Q1

REPORT INFORMATION
  Report Type: 
  Country: None (occurrence: None)
  Receive Date: 20050323
  Receipt Date: 20050314
  Transmission Date: 20050727
  Serious: Yes (Death, Other)
  Sender: FDA-Public Use
  Company Number: US-BRISTOL-MYERS SQUIBB COMPANY-12897864

PATIENT
  Sex: Male

DRUGS (3)
  1. VEPESID [Suspect]
  2. BLENOXANE [Suspect]
  3. PLATINOL [Suspect]

REACTIONS (2)
  - HYPERSENSITIVITY [None]
  - PULMONARY EMBOLISM [None]
